FAERS Safety Report 5156902-4 (Version None)
Quarter: 2006Q4

REPORT INFORMATION
  Report Type: 
  Country: None (occurrence: None)
  Receive Date: 20060918
  Receipt Date: 20060710
  Transmission Date: 20070319
  Serious: Yes (Other)
  Sender: FDA-Public Use
  Company Number: US-JNJFOC-20060702144

PATIENT
  Age: 55 Year
  Sex: Female
  Weight: 77.1115 kg

DRUGS (2)
  1. TOPAMAX [Suspect]
     Indication: CONVULSION
     Dosage: 250 MG IN 1 DAY ORAL
     Route: 048
     Dates: start: 20060606
  2. LEXAPRO (SSRI) [Concomitant]

REACTIONS (1)
  - CONVULSION [None]
